FAERS Safety Report 5444490-4 (Version None)
Quarter: 2007Q3

REPORT INFORMATION
  Report Type: 
  Country: None (occurrence: None)
  Receive Date: 20070831
  Receipt Date: 20070823
  Transmission Date: 20080115
  Serious: Yes (Death, Hospitalization)
  Sender: FDA-Public Use
  Company Number: 2007329636

PATIENT
  Age: 8 Year
  Sex: Female

DRUGS (5)
  1. DIPHENHYDRAMINE HCL [Suspect]
     Dosage: ORAL
     Route: 048
  2. HALOPERIDOL [Suspect]
  3. RISPERIDONE [Suspect]
     Dosage: ORAL
     Route: 048
  4. CHLORPROMAZINE [Suspect]
  5. LORAZEPAM [Suspect]

REACTIONS (24)
  - ACIDOSIS [None]
  - AUTONOMIC NERVOUS SYSTEM IMBALANCE [None]
  - BRAIN DEATH [None]
  - BRAIN HERNIATION [None]
  - BRAIN OEDEMA [None]
  - BRONCHOPNEUMONIA [None]
  - CATATONIA [None]
  - CEREBELLAR INFARCTION [None]
  - CEREBRAL ISCHAEMIA [None]
  - CHOLESTASIS [None]
  - CHOREOATHETOSIS [None]
  - COMA [None]
  - HEART RATE INCREASED [None]
  - HEPATIC NECROSIS [None]
  - HYPERTHERMIA [None]
  - HYPOXIC ENCEPHALOPATHY [None]
  - INTRACRANIAL PRESSURE INCREASED [None]
  - MUCOSAL DRYNESS [None]
  - MULTI-ORGAN FAILURE [None]
  - MUSCLE RIGIDITY [None]
  - NEUROLEPTIC MALIGNANT SYNDROME [None]
  - RHABDOMYOLYSIS [None]
  - SEPSIS [None]
  - URINE OUTPUT DECREASED [None]
